FAERS Safety Report 5358587-0 (Version None)
Quarter: 2007Q2

REPORT INFORMATION
  Report Type: 
  Country: None (occurrence: None)
  Receive Date: 20070615
  Receipt Date: 20070607
  Transmission Date: 20071010
  Serious: Yes (Hospitalization)
  Sender: FDA-Public Use
  Company Number: JP-JNJFOC-20070507170

PATIENT
  Sex: Female

DRUGS (9)
  1. ITRACONAZOLE [Suspect]
     Route: 041
  2. ITRACONAZOLE [Suspect]
     Indication: BRONCHOPULMONARY ASPERGILLOSIS
     Route: 041
  3. ITRIZOLE [Concomitant]
     Route: 048
  4. TULOBUTEROL [Concomitant]
     Indication: ASTHMA
     Route: 065
  5. MEROPENEM TRIHYDRATE [Concomitant]
     Route: 065
  6. MEROPENEM TRIHYDRATE [Concomitant]
     Indication: PNEUMONIA ASPIRATION
     Route: 065
  7. CLINDAMYCIN HCL [Concomitant]
     Route: 065
  8. CLINDAMYCIN HCL [Concomitant]
     Route: 065
  9. PIPERACILLIN SODIUM [Concomitant]
     Route: 065

REACTIONS (1)
  - FASCIITIS [None]
